FAERS Safety Report 10586852 (Version 1)
Quarter: 2014Q4

REPORT INFORMATION
  Report Type: Spontaneous
  Country: US (occurrence: None)
  Receive Date: 20141114
  Receipt Date: 20141114
  Transmission Date: 20150529
  Serious: Yes (Other)
  Sender: FDA-Public Use
  Company Number: None

PATIENT
  Age: 56 Year
  Sex: Female

DRUGS (15)
  1. H.P. ACTHAR [Suspect]
     Active Substance: CORTICOTROPIN
     Indication: RHEUMATOID ARTHRITIS
     Dosage: 80UNITS, TWICE WEEKLY, INJECTION
     Dates: start: 20140927, end: 20141015
  2. TOPIRAMATE. [Concomitant]
     Active Substance: TOPIRAMATE
  3. GABAPENTIN. [Concomitant]
     Active Substance: GABAPENTIN
  4. ESTRACE [Concomitant]
     Active Substance: ESTRADIOL
  5. PAROXETINE [Concomitant]
     Active Substance: PAROXETINE\PAROXETINE HYDROCHLORIDE
  6. MAGNESIUM [Concomitant]
     Active Substance: MAGNESIUM
  7. OMEPRAZOLE. [Concomitant]
     Active Substance: OMEPRAZOLE
  8. ACYCLOVIR. [Concomitant]
     Active Substance: ACYCLOVIR
  9. ONDANSETRON [Concomitant]
     Active Substance: ONDANSETRON
  10. LISINOPRIL. [Concomitant]
     Active Substance: LISINOPRIL
  11. LASIX [Concomitant]
     Active Substance: FUROSEMIDE
  12. ALOE VERA [Concomitant]
     Active Substance: ALOE VERA LEAF
  13. SIMVASTATIN. [Concomitant]
     Active Substance: SIMVASTATIN
  14. HYDROCO/APAP [Concomitant]
     Active Substance: ACETAMINOPHEN\HYDROCODONE
  15. BIOTIN [Concomitant]
     Active Substance: BIOTIN

REACTIONS (1)
  - Gastric haemorrhage [None]

NARRATIVE: CASE EVENT DATE: 20141015
